FAERS Safety Report 13280036 (Version 1)
Quarter: 2017Q1

REPORT INFORMATION
  Report Type: Spontaneous
  Country: CA (occurrence: CA)
  Receive Date: 20170301
  Receipt Date: 20170301
  Transmission Date: 20170428
  Serious: Yes (Life-Threatening)
  Sender: FDA-Public Use
  Company Number: CA-TEVA-745220ACC

PATIENT
  Age: 79 Year
  Sex: Male

DRUGS (6)
  1. OXAZEPAM. [Concomitant]
     Active Substance: OXAZEPAM
  2. ZOPICLONE [Concomitant]
     Active Substance: ZOPICLONE
  3. SILDENAFIL. [Suspect]
     Active Substance: SILDENAFIL
     Indication: ERECTILE DYSFUNCTION
     Route: 048
  4. TESTOSTERONE. [Concomitant]
     Active Substance: TESTOSTERONE
  5. RABEPRAZOLE [Concomitant]
     Active Substance: RABEPRAZOLE
  6. ZOLPIDEM [Concomitant]
     Active Substance: ZOLPIDEM\ZOLPIDEM TARTRATE

REACTIONS (1)
  - Basal ganglia haemorrhage [Unknown]
